FAERS Safety Report 10458535 (Version 1)
Quarter: 2014Q3

REPORT INFORMATION
  Report Type: Spontaneous
  Country: US (occurrence: None)
  Receive Date: 20140916
  Receipt Date: 20140916
  Transmission Date: 20150326
  Serious: Yes (Hospitalization)
  Sender: FDA-Public Use
  Company Number: None

PATIENT
  Age: 61 Year
  Sex: Male
  Weight: 84.4 kg

DRUGS (1)
  1. REGADENOSON [Suspect]
     Active Substance: REGADENOSON
     Indication: HYPERTENSION
     Dates: start: 20140313, end: 20140313

REACTIONS (2)
  - Pulmonary oedema [None]
  - Hypertensive crisis [None]

NARRATIVE: CASE EVENT DATE: 20140313
